FAERS Safety Report 9628639 (Version 1)
Quarter: 2013Q4

REPORT INFORMATION
  Report Type: Spontaneous
  Country: US (occurrence: US)
  Receive Date: 20131017
  Receipt Date: 20131017
  Transmission Date: 20140711
  Serious: Yes (Hospitalization)
  Sender: FDA-Public Use
  Company Number: US-ASTRAZENECA-2013SE75066

PATIENT
  Age: 672 Month
  Sex: Female
  Weight: 68.9 kg

DRUGS (7)
  1. SYMBICORT [Suspect]
     Indication: CHRONIC OBSTRUCTIVE PULMONARY DISEASE
     Dosage: 160/4.5 UG 2 PUFFS BID
     Route: 055
     Dates: start: 2013
  2. SYMBICORT [Suspect]
     Indication: EMPHYSEMA
     Dosage: 160/4.5 UG 2 PUFFS BID
     Route: 055
     Dates: start: 2013
  3. LOPRESSOR [Concomitant]
     Indication: HYPERTENSION
     Dates: start: 2012
  4. ALBUTEROL [Concomitant]
     Dosage: NEBULIZER, ONE UNIT DOSE QID
     Route: 055
  5. ALBUTEROL [Concomitant]
     Dosage: RESCUE INHALER
     Route: 055
  6. DALIRESP [Concomitant]
     Indication: CHRONIC OBSTRUCTIVE PULMONARY DISEASE
     Route: 048
  7. TUDORZA PRESSAIR [Concomitant]
     Indication: CHRONIC OBSTRUCTIVE PULMONARY DISEASE
     Dosage: ONE PUFF BID
     Route: 055

REACTIONS (1)
  - Chronic obstructive pulmonary disease [Recovered/Resolved]
